FAERS Safety Report 23873703 (Version 1)
Quarter: 2024Q2

REPORT INFORMATION
  Report Type: Spontaneous
  Country: US (occurrence: None)
  Receive Date: 20240517
  Receipt Date: 20240517
  Transmission Date: 20240716
  Serious: Yes (Disabling, Other)
  Sender: FDA-Public Use
  Company Number: None

PATIENT
  Age: 82 Year
  Sex: Female
  Weight: 51.75 kg

DRUGS (11)
  1. FARXIGA [Suspect]
     Active Substance: DAPAGLIFLOZIN PROPANEDIOL
     Indication: Cardiac failure
     Dosage: 1 TABLET DAILY ORAL?
     Route: 048
     Dates: start: 20240510, end: 20240516
  2. FARXIGA [Suspect]
     Active Substance: DAPAGLIFLOZIN PROPANEDIOL
     Indication: Fluid retention
  3. ICD Implant [Concomitant]
  4. ARMOUR THYROID [Concomitant]
     Active Substance: THYROID, PORCINE
  5. Entresti [Concomitant]
  6. Aspirin [Concomitant]
  7. DIGOXIN [Concomitant]
  8. Albuterol [Concomitant]
  9. COENZYME Q10 [Concomitant]
     Active Substance: DIETARY SUPPLEMENT\UBIDECARENONE
  10. COD LIVER OIL [Concomitant]
     Active Substance: COD LIVER OIL
  11. MagLG [Concomitant]

REACTIONS (5)
  - Abdominal discomfort [None]
  - Diarrhoea [None]
  - Hypophagia [None]
  - Vomiting [None]
  - Dehydration [None]

NARRATIVE: CASE EVENT DATE: 20240517
